FAERS Safety Report 17371342 (Version 1)
Quarter: 2020Q1

REPORT INFORMATION
  Report Type: Spontaneous
  Country: US (occurrence: US)
  Receive Date: 20200205
  Receipt Date: 20200205
  Transmission Date: 20200409
  Serious: No
  Sender: FDA-Public Use
  Company Number: US-CELGENEUS-USA-20191209261

PATIENT
  Age: 65 Year
  Sex: Female
  Weight: 99 kg

DRUGS (2)
  1. POMALYST [Suspect]
     Active Substance: POMALIDOMIDE
     Indication: PLASMA CELL MYELOMA
     Dosage: 2 MILLIGRAM
     Route: 048
     Dates: start: 20191203, end: 20191204
  2. POMALYST [Suspect]
     Active Substance: POMALIDOMIDE
     Indication: INTERSPINOUS OSTEOARTHRITIS

REACTIONS (4)
  - Dizziness [Unknown]
  - Heart rate increased [Unknown]
  - Nausea [Unknown]
  - Rash [Unknown]

NARRATIVE: CASE EVENT DATE: 20191203
